FAERS Safety Report 10613407 (Version 1)
Quarter: 2014Q4

REPORT INFORMATION
  Report Type: Report from Study
  Country: CA (occurrence: CA)
  Receive Date: 20141128
  Receipt Date: 20141128
  Transmission Date: 20150529
  Serious: Yes (Hospitalization)
  Sender: FDA-Public Use
  Company Number: CA-JNJFOC-20141114196

PATIENT
  Sex: Female
  Weight: 40.82 kg

DRUGS (1)
  1. REMICADE [Suspect]
     Active Substance: INFLIXIMAB
     Indication: CROHN^S DISEASE
     Route: 042
     Dates: start: 201010

REACTIONS (5)
  - Crohn^s disease [Unknown]
  - Infection [Unknown]
  - Anal abscess [Unknown]
  - Anorectal operation [Unknown]
  - Fistula [Unknown]

NARRATIVE: CASE EVENT DATE: 2014
